FAERS Safety Report 5750041-7 (Version None)
Quarter: 2008Q2

REPORT INFORMATION
  Report Type: 
  Country: None (occurrence: None)
  Receive Date: 20080527
  Receipt Date: 20080521
  Transmission Date: 20081010
  Serious: Yes (Hospitalization, Disabling)
  Sender: FDA-Public Use
  Company Number: JP-BOEHRINGER INGELHEIM GMBH, GERMANY-2008-BP-06734NB

PATIENT
  Sex: Male

DRUGS (3)
  1. MICARDIS [Suspect]
     Indication: HYPERTENSION
     Route: 048
     Dates: start: 20061220, end: 20070107
  2. ALLEGRA [Concomitant]
     Route: 048
     Dates: start: 20061115
  3. PAXIL [Concomitant]
     Route: 048

REACTIONS (1)
  - CEREBRAL INFARCTION [None]
